FAERS Safety Report 8780086 (Version 1)
Quarter: 2012Q4

REPORT INFORMATION
  Report Type: 
  Country: US (occurrence: US)
  Receive Date: 20120912
  Receipt Date: 20120912
  Transmission Date: 20130627
  Serious: No
  Sender: FDA-Public Use
  Company Number: US-VERTEX PHARMACEUTICAL INC.-AE-2012-001154

PATIENT

DRUGS (18)
  1. VX-950 [Suspect]
     Indication: HEPATITIS C
     Dosage: 750 mg, tid
     Route: 048
  2. PEGASYS [Concomitant]
     Indication: HEPATITIS C
     Route: 058
     Dates: start: 20120108
  3. RIBAVIRIN [Concomitant]
     Indication: HEPATITIS C
     Route: 048
     Dates: start: 20120108
  4. RIBAVIRIN [Concomitant]
     Route: 048
  5. FISH OIL [Concomitant]
  6. GLUCOSAMINE [Concomitant]
     Dosage: 500 mg, UNK
     Route: 048
  7. LEVOTHYROXINE [Concomitant]
     Route: 048
  8. LISINOPRIL [Concomitant]
     Route: 048
  9. MILK THISTLE [Concomitant]
     Route: 048
  10. MULTIVITAMIN [Concomitant]
  11. NUPERCAINAL [Concomitant]
     Dosage: 1 UNK, UNK
  12. TYLENOL EXTRA STRENGTH [Concomitant]
  13. DESFERAL CIBA [Concomitant]
     Dosage: 500 mg, UNK
     Route: 058
  14. HYDROCORT                          /00028602/ [Concomitant]
     Dosage: 1 %, UNK
  15. TEMAZEPAM [Concomitant]
     Dosage: 30 UNK, UNK
     Route: 048
  16. LOCOID OIN [Concomitant]
     Dosage: 0.1 %, UNK
  17. PREPARATION PAD H [Concomitant]
  18. PREPARATION OIN H [Concomitant]

REACTIONS (23)
  - White blood cell count decreased [Not Recovered/Not Resolved]
  - Iron metabolism disorder [Not Recovered/Not Resolved]
  - Influenza like illness [Not Recovered/Not Resolved]
  - Gingival bleeding [Unknown]
  - Epistaxis [Unknown]
  - Headache [Not Recovered/Not Resolved]
  - Dizziness [Unknown]
  - Insomnia [Not Recovered/Not Resolved]
  - Chills [Unknown]
  - Productive cough [Unknown]
  - Irritability [Unknown]
  - Dry skin [Unknown]
  - Asthenia [Unknown]
  - Fatigue [Not Recovered/Not Resolved]
  - Skin burning sensation [Not Recovered/Not Resolved]
  - Photosensitivity reaction [Unknown]
  - Rash papular [Unknown]
  - Anaemia [Unknown]
  - Pruritus generalised [Unknown]
  - Platelet count decreased [Not Recovered/Not Resolved]
  - Rectal haemorrhage [Unknown]
  - Anorectal discomfort [Not Recovered/Not Resolved]
  - Anal pruritus [Unknown]
